FAERS Safety Report 25206200 (Version 1)
Quarter: 2025Q2

REPORT INFORMATION
  Report Type: Report from Study
  Country: TH (occurrence: TH)
  Receive Date: 20250417
  Receipt Date: 20250417
  Transmission Date: 20250716
  Serious: Yes (Death, Hospitalization)
  Sender: EISAI
  Company Number: TH-Eisai-EC-2025-187372

PATIENT
  Age: 72 Year
  Sex: Male

DRUGS (1)
  1. LENVIMA [Suspect]
     Active Substance: LENVATINIB
     Indication: Hepatocellular carcinoma
     Dates: start: 20250320, end: 20250327

REACTIONS (2)
  - Death [Fatal]
  - Intra-abdominal haemorrhage [Not Recovered/Not Resolved]

NARRATIVE: CASE EVENT DATE: 20250328
